FAERS Safety Report 8010268-0 (Version None)
Quarter: 2011Q4

REPORT INFORMATION
  Report Type: 
  Country: None (occurrence: None)
  Receive Date: 20111123
  Receipt Date: 20110728
  Transmission Date: 20120403
  Serious: No
  Sender: FDA-Public Use
  Company Number: 334219

PATIENT
  Age: 78 Year
  Sex: Female

DRUGS (3)
  1. VICTOZA [Suspect]
     Indication: TYPE 2 DIABETES MELLITUS
     Dosage: UNK, SUBCUTANEOUS
     Route: 058
     Dates: start: 20110725
  2. GLYBURIDE [Concomitant]
  3. ONGLYZA [Concomitant]

REACTIONS (2)
  - MALAISE [None]
  - NAUSEA [None]
